FAERS Safety Report 4367870-7 (Version None)
Quarter: 2004Q2

REPORT INFORMATION
  Report Type: 
  Country: None (occurrence: None)
  Receive Date: 20040601
  Receipt Date: 20040601
  Transmission Date: 20050107
  Serious: Yes (Hospitalization)
  Sender: FDA-Public Use
  Company Number: None

PATIENT
  Sex: Male
  Weight: 99.7913 kg

DRUGS (10)
  1. SEROQUEL [Suspect]
     Indication: ANXIETY
     Dosage: 100 MG AM ORAL
     Route: 048
     Dates: start: 20011211, end: 20011225
  2. SEROQUEL [Suspect]
     Indication: DEPRESSION
     Dosage: 100 MG AM ORAL
     Route: 048
     Dates: start: 20011211, end: 20011225
  3. SEROQUEL [Suspect]
     Indication: IMPULSIVE BEHAVIOUR
     Dosage: 100 MG AM ORAL
     Route: 048
     Dates: start: 20011211, end: 20011225
  4. SEROQUEL [Suspect]
     Indication: ANXIETY
     Dosage: 200 MG PM ORAL
     Route: 048
     Dates: start: 20011211, end: 20020207
  5. SEROQUEL [Suspect]
     Indication: DEPRESSION
     Dosage: 200 MG PM ORAL
     Route: 048
     Dates: start: 20011211, end: 20020207
  6. SEROQUEL [Suspect]
     Indication: IMPULSIVE BEHAVIOUR
     Dosage: 200 MG PM ORAL
     Route: 048
     Dates: start: 20011211, end: 20020207
  7. VENLAFAXINE HCL [Concomitant]
  8. DIVALPROEX SODIUM [Concomitant]
  9. PAROXETINE HCL [Concomitant]
  10. HYDROXYZINE [Concomitant]

REACTIONS (13)
  - ABNORMAL DREAMS [None]
  - BACK INJURY [None]
  - CONTUSION [None]
  - DELIRIUM [None]
  - FALL [None]
  - HEAD INJURY [None]
  - JOINT INJURY [None]
  - LIMB INJURY [None]
  - NECK INJURY [None]
  - NIGHTMARE [None]
  - POLYTRAUMATISM [None]
  - TREATMENT NONCOMPLIANCE [None]
  - WOUND [None]
